FAERS Safety Report 17727228 (Version 7)
Quarter: 2023Q2

REPORT INFORMATION
  Report Type: Spontaneous
  Country: US (occurrence: US)
  Receive Date: 20200430
  Receipt Date: 20230524
  Transmission Date: 20230722
  Serious: Yes (Other)
  Sender: FDA-Public Use
  Company Number: US-GILEAD-2020-0460881

PATIENT
  Age: 65 Year
  Sex: Female
  Weight: 61.224 kg

DRUGS (30)
  1. TRUVADA [Suspect]
     Active Substance: EMTRICITABINE\TENOFOVIR DISOPROXIL FUMARATE
     Indication: HIV infection
     Dosage: UNK
     Route: 048
     Dates: start: 20150904, end: 20151021
  2. ATRIPLA [Suspect]
     Active Substance: EFAVIRENZ\EMTRICITABINE\TENOFOVIR DISOPROXIL FUMARATE
     Indication: HIV infection
     Dosage: UNK
     Route: 048
     Dates: start: 201403, end: 201510
  3. ATRIPLA [Suspect]
     Active Substance: EFAVIRENZ\EMTRICITABINE\TENOFOVIR DISOPROXIL FUMARATE
     Dosage: UNK
     Route: 048
     Dates: start: 20140317, end: 20151021
  4. EMTRIVA [Concomitant]
     Active Substance: EMTRICITABINE
     Dosage: UNK
  5. ACETAMINOPHEN [Concomitant]
     Active Substance: ACETAMINOPHEN
  6. AMOXICILLIN [Concomitant]
     Active Substance: AMOXICILLIN
  7. ASPIRIN [Concomitant]
     Active Substance: ASPIRIN
  8. TETRACYCLINE [Concomitant]
     Active Substance: TETRACYCLINE
  9. COMBIVIR [Concomitant]
     Active Substance: LAMIVUDINE\ZIDOVUDINE
  10. FUZEON [Concomitant]
     Active Substance: ENFUVIRTIDE
  11. PREZCOBIX [Concomitant]
     Active Substance: COBICISTAT\DARUNAVIR ETHANOLATE
  12. RETROVIR [Concomitant]
     Active Substance: ZIDOVUDINE
  13. SUSTIVA [Concomitant]
     Active Substance: EFAVIRENZ
  14. TIVICAY [Concomitant]
     Active Substance: DOLUTEGRAVIR SODIUM
  15. VIRACEPT [Concomitant]
     Active Substance: NELFINAVIR MESYLATE
  16. ALEVE [Concomitant]
     Active Substance: NAPROXEN SODIUM
  17. IBUPROFEN [Concomitant]
     Active Substance: IBUPROFEN
  18. LOVENOX [Concomitant]
     Active Substance: ENOXAPARIN SODIUM
  19. GADOBUTROL [Concomitant]
     Active Substance: GADOBUTROL
  20. ALPRAZOLAM [Concomitant]
     Active Substance: ALPRAZOLAM
  21. VICODIN [Concomitant]
     Active Substance: ACETAMINOPHEN\HYDROCODONE BITARTRATE
  22. MORPHINE [Concomitant]
     Active Substance: MORPHINE
  23. VICKS NYQUIL [Concomitant]
     Active Substance: ACETAMINOPHEN\DEXTROMETHORPHAN HYDROBROMIDE\DOXYLAMINE SUCCINATE
  24. ALCOHOL\DEXTROMETHORPHAN\GUAIFENESIN [Concomitant]
     Active Substance: ALCOHOL\DEXTROMETHORPHAN\GUAIFENESIN
  25. BROMPHENIRAMINE MALEATE\PHENYLEPHRINE HYDROCHLORIDE [Concomitant]
     Active Substance: BROMPHENIRAMINE MALEATE\PHENYLEPHRINE HYDROCHLORIDE
  26. PROTONIX [Concomitant]
     Active Substance: PANTOPRAZOLE SODIUM
  27. PENICILLIN [Concomitant]
     Active Substance: PENICILLIN
  28. ZOFRAN [Concomitant]
     Active Substance: ONDANSETRON HYDROCHLORIDE
  29. SODIUM CHLORIDE [Concomitant]
     Active Substance: SODIUM CHLORIDE
  30. NITROSTAT [Concomitant]
     Active Substance: NITROGLYCERIN

REACTIONS (15)
  - Chronic kidney disease [Not Recovered/Not Resolved]
  - Renal failure [Not Recovered/Not Resolved]
  - Fanconi syndrome acquired [Not Recovered/Not Resolved]
  - Acute kidney injury [Recovered/Resolved]
  - Renal tubular disorder [Unknown]
  - Renal impairment [Unknown]
  - Azotaemia [Unknown]
  - Renal disorder [Unknown]
  - Blood creatinine increased [Unknown]
  - Pollakiuria [Not Recovered/Not Resolved]
  - Emotional distress [Unknown]
  - Pain [Unknown]
  - Insomnia [Not Recovered/Not Resolved]
  - Malaise [Unknown]
  - Economic problem [Unknown]

NARRATIVE: CASE EVENT DATE: 20150102
